FAERS Safety Report 15744815 (Version 3)
Quarter: 2019Q1

REPORT INFORMATION
  Report Type: Spontaneous
  Country: US (occurrence: US)
  Receive Date: 20181220
  Receipt Date: 20190115
  Transmission Date: 20190417
  Serious: Yes (Other)
  Sender: FDA-Public Use
  Company Number: US-INDIVIOR INC.-INDV-116442-2018

PATIENT
  Age: 64 Year
  Sex: Male

DRUGS (1)
  1. SUBOXONE [Suspect]
     Active Substance: BUPRENORPHINE HYDROCHLORIDE\NALOXONE HYDROCHLORIDE
     Indication: PAIN
     Dosage: 8 MG, BID
     Route: 065
     Dates: start: 20180801

REACTIONS (4)
  - Back disorder [Unknown]
  - Off label use [Not Recovered/Not Resolved]
  - Musculoskeletal discomfort [Unknown]
  - Inappropriate schedule of product administration [Not Recovered/Not Resolved]

NARRATIVE: CASE EVENT DATE: 20180801
